FAERS Safety Report 13389452 (Version 3)
Quarter: 2018Q3

REPORT INFORMATION
  Report Type: Report from Study
  Country: US (occurrence: US)
  Receive Date: 20170330
  Receipt Date: 20180711
  Transmission Date: 20181010
  Serious: No
  Sender: FDA-Public Use
  Company Number: PHEH2017US009142

PATIENT
  Sex: Female

DRUGS (1)
  1. AFINITOR [Suspect]
     Active Substance: EVEROLIMUS
     Indication: ASTROCYTOMA, LOW GRADE
     Dosage: 5 MG, QD
     Route: 048
     Dates: start: 20140410

REACTIONS (5)
  - Folliculitis [Recovering/Resolving]
  - Emotional distress [Unknown]
  - Oral pain [Recovered/Resolved]
  - Anxiety [Not Recovered/Not Resolved]
  - Aphthous ulcer [Recovered/Resolved]
